FAERS Safety Report 10203453 (Version 1)
Quarter: 2014Q2

REPORT INFORMATION
  Report Type: Spontaneous
  Country: US (occurrence: None)
  Receive Date: 20140523
  Receipt Date: 20140523
  Transmission Date: 20141212
  Serious: Yes (Hospitalization)
  Sender: FDA-Public Use
  Company Number: UNT-2014-000261

PATIENT
  Age: 49 Year
  Sex: Female

DRUGS (1)
  1. TYVASO (TREPROSTINIL SODIUM) INHALATION GAS, 0.6MG/ML [Suspect]
     Indication: PULMONARY ARTERIAL HYPERTENSION
     Route: 055
     Dates: start: 20140409

REACTIONS (7)
  - Pneumonia [None]
  - White blood cell count decreased [None]
  - Pyrexia [None]
  - Chest discomfort [None]
  - Malaise [None]
  - Feeling cold [None]
  - Facial pain [None]
